FAERS Safety Report 7915721-3 (Version None)
Quarter: 2011Q4

REPORT INFORMATION
  Report Type: 
  Country: None (occurrence: None)
  Receive Date: 20111115
  Receipt Date: 20111108
  Transmission Date: 20120403
  Serious: Yes (Other)
  Sender: FDA-Public Use
  Company Number: JP-GLAXOSMITHKLINE-B0761904A

PATIENT
  Sex: Female

DRUGS (1)
  1. FLUTICASONE PROPIONATE/SALMETEROL [Suspect]
     Indication: ASTHMA
     Route: 055
     Dates: start: 20100801, end: 20111007

REACTIONS (5)
  - PARAESTHESIA ORAL [None]
  - PRODUCTIVE COUGH [None]
  - PRURITUS [None]
  - COUGH [None]
  - ASTHMA [None]
